FAERS Safety Report 16938934 (Version 2)
Quarter: 2019Q4

REPORT INFORMATION
  Report Type: Spontaneous
  Country: US (occurrence: US)
  Receive Date: 20191020
  Receipt Date: 20191115
  Transmission Date: 20200122
  Serious: Yes (Hospitalization, Other)
  Sender: FDA-Public Use
  Company Number: US-009507513-1910USA010240

PATIENT
  Age: 19 Year
  Sex: Female
  Weight: 64.85 kg

DRUGS (1)
  1. NEXPLANON [Suspect]
     Active Substance: ETONOGESTREL
     Indication: CONTRACEPTION
     Dosage: 1 IMPLANT, EVERY 3 YERAS
     Route: 058
     Dates: start: 20190104, end: 20190115

REACTIONS (3)
  - Maternal exposure during pregnancy [Recovered/Resolved]
  - Endometritis [Unknown]
  - Postpartum haemorrhage [Unknown]

NARRATIVE: CASE EVENT DATE: 20190830
